FAERS Safety Report 23491084 (Version 1)
Quarter: 2024Q1

REPORT INFORMATION
  Report Type: Other
  Country: FR (occurrence: FR)
  Receive Date: 20240207
  Receipt Date: 20240207
  Transmission Date: 20240409
  Serious: Yes (Other)
  Sender: FDA-Public Use
  Company Number: FR-DENTSPLY-2024SCDP000030

PATIENT
  Age: 55 Year
  Sex: Female

DRUGS (1)
  1. LIDOCAINE HYDROCHLORIDE AND EPINEPHRINE BITARTRATE [Suspect]
     Active Substance: EPINEPHRINE BITARTRATE\LIDOCAINE HYDROCHLORIDE
     Indication: Local anaesthesia
     Dosage: UNK

REACTIONS (1)
  - Skin necrosis [Unknown]
